FAERS Safety Report 4315411-2 (Version None)
Quarter: 2004Q1

REPORT INFORMATION
  Report Type: 
  Country: None (occurrence: None)
  Receive Date: 20040311
  Receipt Date: 20031203
  Transmission Date: 20041129
  Serious: Yes (Hospitalization)
  Sender: FDA-Public Use
  Company Number: GB-BRISTOL-MYERS SQUIBB COMPANY-12448676

PATIENT
  Age: 57 Year
  Sex: Male
  Weight: 70 kg

DRUGS (5)
  1. CISPLATIN [Suspect]
     Indication: MESOTHELIOMA
     Dates: start: 20031009, end: 20031009
  2. PEMETREXED DISODIUM [Suspect]
     Indication: MESOTHELIOMA
     Dates: start: 20031009, end: 20031009
  3. LOSARTAN [Concomitant]
     Indication: LIPIDS INCREASED
     Dates: start: 19700101
  4. FOLIC ACID [Concomitant]
     Dates: start: 20030911
  5. VITAMIN B-12 [Concomitant]
     Dates: start: 20030911

REACTIONS (1)
  - SKIN DISCOLOURATION [None]
